FAERS Safety Report 9185993 (Version 1)
Quarter: 2013Q1

REPORT INFORMATION
  Report Type: Spontaneous
  Country: US (occurrence: US)
  Receive Date: 20130325
  Receipt Date: 20130325
  Transmission Date: 20140127
  Serious: No
  Sender: FDA-Public Use
  Company Number: US-ASTRAZENECA-2013SE16478

PATIENT
  Age: 1 Year
  Sex: Female
  Weight: 8.2 kg

DRUGS (6)
  1. NEXIUM [Suspect]
     Indication: GASTROOESOPHAGEAL REFLUX DISEASE
     Route: 048
     Dates: start: 201112
  2. NEXIUM [Suspect]
     Indication: GASTROOESOPHAGEAL REFLUX DISEASE
     Route: 048
  3. MIRALAX [Concomitant]
     Indication: CONSTIPATION
     Dates: start: 201201
  4. CULTURED PROBIOTIC [Concomitant]
     Dates: start: 201303
  5. TYLENOL [Concomitant]
  6. IBUPROFEN [Concomitant]

REACTIONS (2)
  - Discomfort [Unknown]
  - Intentional drug misuse [Unknown]
